FAERS Safety Report 8442629-X (Version None)
Quarter: 2012Q2

REPORT INFORMATION
  Report Type: 
  Country: None (occurrence: None)
  Receive Date: 20120615
  Receipt Date: 20111122
  Transmission Date: 20120825
  Serious: No
  Sender: FDA-Public Use
  Company Number: US-NOVEN-11US003672

PATIENT
  Age: 11 Year
  Sex: Female

DRUGS (1)
  1. DAYTRANA [Suspect]
     Indication: ATTENTION DEFICIT/HYPERACTIVITY DISORDER
     Dosage: 1 PATCH, QD
     Route: 062
     Dates: start: 20110101

REACTIONS (3)
  - DISTRACTIBILITY [None]
  - ABNORMAL BEHAVIOUR [None]
  - DRUG EFFECT DECREASED [None]
